FAERS Safety Report 8586341-5 (Version None)
Quarter: 2012Q3

REPORT INFORMATION
  Report Type: 
  Country: None (occurrence: None)
  Receive Date: 20120810
  Receipt Date: 20120806
  Transmission Date: 20120928
  Serious: Yes (Hospitalization)
  Sender: FDA-Public Use
  Company Number: CH-ABBOTT-12P-151-0950492-00

PATIENT
  Age: 68 Year
  Sex: Female

DRUGS (11)
  1. METHOTREXATE [Suspect]
     Indication: PSORIATIC ARTHROPATHY
     Route: 048
     Dates: start: 20050801, end: 20120404
  2. ROCEPHIN [Interacting]
     Indication: PNEUMONIA BACTERIAL
     Route: 042
     Dates: start: 20120323, end: 20120405
  3. RAMIPRIL [Concomitant]
     Indication: PRODUCT USED FOR UNKNOWN INDICATION
     Route: 048
  4. CLARITHROMYCIN [Interacting]
     Indication: PNEUMONIA BACTERIAL
     Route: 048
     Dates: start: 20120323, end: 20120405
  5. IBRUPROFEN [Interacting]
     Indication: BACK DISORDER
     Route: 048
     Dates: start: 20120301, end: 20120404
  6. ESCITALOPRAM [Interacting]
     Indication: PRODUCT USED FOR UNKNOWN INDICATION
     Route: 048
  7. PREDNISONE TAB [Interacting]
     Indication: PSORIATIC ARTHROPATHY
     Route: 048
     Dates: start: 20050801
  8. TRAMADOL HCL [Concomitant]
     Indication: PRODUCT USED FOR UNKNOWN INDICATION
     Dates: start: 20120404
  9. FRAGMIN [Interacting]
     Indication: PROPHYLAXIS
     Route: 058
     Dates: start: 20120301, end: 20120404
  10. PANTOPRAZOLE [Concomitant]
     Indication: PRODUCT USED FOR UNKNOWN INDICATION
     Route: 048
  11. CALCIMAGON D3 [Concomitant]
     Indication: PRODUCT USED FOR UNKNOWN INDICATION
     Route: 048

REACTIONS (8)
  - CYTOMEGALOVIRUS TEST POSITIVE [None]
  - ENTEROCOLITIS HAEMORRHAGIC [None]
  - BACK PAIN [None]
  - DIVERTICULITIS [None]
  - LOWER GASTROINTESTINAL HAEMORRHAGE [None]
  - HAEMORRHAGIC ANAEMIA [None]
  - GASTROINTESTINAL INFLAMMATION [None]
  - HAEMORRHOIDS [None]
